FAERS Safety Report 4509819-X (Version None)
Quarter: 2004Q4

REPORT INFORMATION
  Report Type: 
  Country: None (occurrence: None)
  Receive Date: 20041119
  Receipt Date: 20041028
  Transmission Date: 20050328
  Serious: Yes (Other)
  Sender: FDA-Public Use
  Company Number: US_0411107582

PATIENT
  Sex: Male

DRUGS (3)
  1. HUMALOG [Suspect]
     Indication: DIABETES MELLITUS
     Dosage: 5 U DAY
  2. HUMULIN N [Suspect]
     Indication: DIABETES MELLITUS
     Dosage: 15 U/2 DAY
  3. HUMULIN R [Suspect]
     Indication: DIABETES MELLITUS

REACTIONS (8)
  - CERVICAL VERTEBRAL FRACTURE [None]
  - ECONOMIC PROBLEM [None]
  - GLYCOSYLATED HAEMOGLOBIN INCREASED [None]
  - IMPAIRED WORK ABILITY [None]
  - PHARMACEUTICAL PRODUCT COMPLAINT [None]
  - ROAD TRAFFIC ACCIDENT [None]
  - SPINAL CORD INJURY [None]
  - STRESS SYMPTOMS [None]
